FAERS Safety Report 24329857 (Version 1)
Quarter: 2024Q3

REPORT INFORMATION
  Report Type: Spontaneous
  Country: US (occurrence: US)
  Receive Date: 20240917
  Receipt Date: 20240917
  Transmission Date: 20241016
  Serious: No
  Sender: SANOFI AVENTIS
  Company Number: US-SA-2024SA266560

PATIENT
  Age: 16 Year
  Sex: Male

DRUGS (2)
  1. DUPIXENT [Suspect]
     Active Substance: DUPILUMAB
     Indication: Dermatitis atopic
     Dosage: 300 MG, QOW
     Route: 058
  2. CERAVE HEALING [Concomitant]
     Active Substance: PETROLATUM
     Indication: Dry skin
     Dosage: UNK

REACTIONS (3)
  - Somnolence [Unknown]
  - Ocular hyperaemia [Unknown]
  - Therapeutic response decreased [Unknown]
